FAERS Safety Report 7261691-3 (Version None)
Quarter: 2011Q1

REPORT INFORMATION
  Report Type: 
  Country: None (occurrence: None)
  Receive Date: 20110130
  Receipt Date: 20101023
  Transmission Date: 20110831
  Serious: No
  Sender: FDA-Public Use
  Company Number: US-ABBOTT-10P-163-0680953-00

PATIENT
  Age: 37 Year
  Sex: Male

DRUGS (2)
  1. LAMIPRIL [Concomitant]
     Indication: HYPERTENSION
  2. HUMIRA [Suspect]
     Indication: PSORIASIS
     Dosage: 80 MG ON DAY 1 THAN 40 MG ON DAY 8
     Dates: start: 20101015

REACTIONS (2)
  - INJECTION SITE INDURATION [None]
  - INJECTION SITE SWELLING [None]
